FAERS Safety Report 16446422 (Version 1)
Quarter: 2019Q2

REPORT INFORMATION
  Report Type: Spontaneous
  Country: US (occurrence: US)
  Receive Date: 20190618
  Receipt Date: 20190618
  Transmission Date: 20190711
  Serious: Yes (Hospitalization)
  Sender: FDA-Public Use
  Company Number: US-GILEAD-2019-0413810

PATIENT
  Age: 54 Year
  Sex: Male

DRUGS (10)
  1. ASPIRINE [Concomitant]
     Active Substance: ASPIRIN
     Dosage: 81 MG
  2. DEPAKOTE [Concomitant]
     Active Substance: DIVALPROEX SODIUM
     Dosage: 3000 MG
  3. ATRIPLA [Suspect]
     Active Substance: EFAVIRENZ\EMTRICITABINE\TENOFOVIR DISOPROXIL FUMARATE
     Indication: HIV INFECTION
     Route: 065
  4. SERTRALINE [Concomitant]
     Active Substance: SERTRALINE HYDROCHLORIDE
     Dosage: 100 MG
  5. SUSTIVA [Suspect]
     Active Substance: EFAVIRENZ
     Indication: HIV INFECTION
     Dosage: 600 MG
     Route: 048
     Dates: start: 1999
  6. VITAMIN D3 [Concomitant]
     Active Substance: CHOLECALCIFEROL
  7. LISINOPRIL. [Concomitant]
     Active Substance: LISINOPRIL
     Dosage: 20 MG
  8. IBUPROFEN. [Concomitant]
     Active Substance: IBUPROFEN
  9. LIDOCAINE. [Concomitant]
     Active Substance: LIDOCAINE
  10. DICLOFENAC ACTAVIS [Concomitant]

REACTIONS (2)
  - Mental disorder [Unknown]
  - Depression [Unknown]
